FAERS Safety Report 8401807-6 (Version None)
Quarter: 2012Q2

REPORT INFORMATION
  Report Type: 
  Country: None (occurrence: None)
  Receive Date: 20120529
  Receipt Date: 19920114
  Transmission Date: 20120825
  Serious: Yes (Hospitalization, Other)
  Sender: FDA-Public Use
  Company Number: 003895

PATIENT
  Age: 44 Year
  Sex: Female

DRUGS (9)
  1. B1_B6_B12 COMBINED DRUG (B1_B6_B12 COMBINED DRUG) [Concomitant]
  2. ALFACALCIDOL (ALFACALCIDOL) [Concomitant]
  3. PLETAL [Suspect]
     Dosage: 200 MG, DAILY DOSE, ORAL
     Route: 048
     Dates: start: 19911106, end: 19911213
  4. PRECIPITATED CALCIUM CARBONATE (PRECIPITATED CALCIUM CARBONATE) [Concomitant]
  5. DIMETINDENE MALEATE (DIMETINDENE MALEATE) [Concomitant]
  6. FOLIC ACID [Concomitant]
  7. DIPYRIDAMOLE [Concomitant]
  8. FLUOXYMESTERONE [Concomitant]
  9. FESTAL (PANCREAS EXTRACT) [Concomitant]

REACTIONS (8)
  - HEPATIC FUNCTION ABNORMAL [None]
  - MALAISE [None]
  - HYPERTHERMIA [None]
  - GASTRIC ULCER [None]
  - ENDOCARDITIS [None]
  - JAUNDICE [None]
  - KLEBSIELLA SEPSIS [None]
  - ANAEMIA [None]
